FAERS Safety Report 8304886-X (Version None)
Quarter: 2012Q2

REPORT INFORMATION
  Report Type: 
  Country: None (occurrence: None)
  Receive Date: 20120423
  Receipt Date: 20120413
  Transmission Date: 20120825
  Serious: Yes (Other)
  Sender: FDA-Public Use
  Company Number: US-JNJFOC-20120406821

PATIENT
  Sex: Female
  Weight: 72.58 kg

DRUGS (6)
  1. HYDROCHLOROTHIAZIDE [Concomitant]
     Indication: BLOOD PRESSURE
     Route: 048
  2. INDERAL [Concomitant]
     Route: 048
     Dates: start: 20110101, end: 20111206
  3. COZAAR [Concomitant]
     Indication: BLOOD PRESSURE
     Route: 048
  4. INDERAL [Concomitant]
     Indication: CARDIAC DISORDER
     Route: 048
     Dates: start: 20111206
  5. XARELTO [Suspect]
     Indication: ATRIAL FIBRILLATION
     Route: 048
     Dates: start: 20111206, end: 20120411
  6. ASPIRIN [Suspect]
     Indication: PRODUCT USED FOR UNKNOWN INDICATION
     Route: 048
     Dates: end: 20120411

REACTIONS (3)
  - DIARRHOEA [None]
  - HAEMATURIA [None]
  - TOOTHACHE [None]
